FAERS Safety Report 8604214-6 (Version None)
Quarter: 2012Q3

REPORT INFORMATION
  Report Type: 
  Country: None (occurrence: None)
  Receive Date: 20120820
  Receipt Date: 20120814
  Transmission Date: 20120928
  Serious: No
  Sender: FDA-Public Use
  Company Number: US-PFIZER INC-2012199735

PATIENT
  Age: 69 Year
  Sex: Female
  Weight: 85.261 kg

DRUGS (2)
  1. CELEXA [Concomitant]
     Indication: ANXIETY
     Dosage: HALF A TABLET OF 20MG, DAILY
  2. PREMARIN [Suspect]
     Indication: VAGINAL PROLAPSE
     Dosage: UNK, DAILY

REACTIONS (2)
  - DRUG INTOLERANCE [None]
  - OFF LABEL USE [None]
